FAERS Safety Report 6081730-5 (Version None)
Quarter: 2009Q1

REPORT INFORMATION
  Report Type: 
  Country: None (occurrence: None)
  Receive Date: 20090129
  Receipt Date: 20080411
  Transmission Date: 20090719
  Serious: No
  Sender: FDA-Public Use
  Company Number: EUR 201

PATIENT
  Age: 69 Year
  Sex: Female

DRUGS (2)
  1. POTASSIUM CHLORIDE 20MEQ [Suspect]
     Indication: ELECTROLYTE SUBSTITUTION THERAPY
     Dosage: 20 MEQ, 1 QD, PO
     Route: 048
     Dates: start: 20080302
  2. DIURETIC [Concomitant]

REACTIONS (1)
  - CHOKING [None]
